FAERS Safety Report 14539499 (Version 1)
Quarter: 2018Q1

REPORT INFORMATION
  Report Type: Spontaneous
  Country: GB (occurrence: GB)
  Receive Date: 20180215
  Receipt Date: 20180215
  Transmission Date: 20180509
  Serious: Yes (Other)
  Sender: FDA-Public Use
  Company Number: None

PATIENT
  Age: 49 Week
  Sex: Male
  Weight: 101.25 kg

DRUGS (4)
  1. AMLODIPINE [Concomitant]
     Active Substance: AMLODIPINE BESYLATE
  2. MEFLOQUINE HYDROCHLORIDE. [Suspect]
     Active Substance: MEFLOQUINE HYDROCHLORIDE
     Indication: MALARIA PROPHYLAXIS
     Dosage: ?          OTHER FREQUENCY:WEEKLY;?
     Route: 048
  3. RAMIPRIL. [Concomitant]
     Active Substance: RAMIPRIL
  4. DOXYZOSIN [Concomitant]

REACTIONS (11)
  - Suicidal ideation [None]
  - Anxiety [None]
  - Depression [None]
  - Social problem [None]
  - Arthralgia [None]
  - Myalgia [None]
  - Mental disorder [None]
  - Amnesia [None]
  - Anger [None]
  - Insomnia [None]
  - Pain [None]

NARRATIVE: CASE EVENT DATE: 20030501
